FAERS Safety Report 8953952 (Version 2)
Quarter: 2013Q1

REPORT INFORMATION
  Report Type: Spontaneous
  Country: US (occurrence: US)
  Receive Date: 20121206
  Receipt Date: 20130321
  Transmission Date: 20140127
  Serious: Yes (Hospitalization, Other)
  Sender: FDA-Public Use
  Company Number: US-009507513-1212USA001285

PATIENT
  Sex: Female
  Weight: 70.3 kg

DRUGS (3)
  1. JANUMET XR [Suspect]
     Indication: TYPE 2 DIABETES MELLITUS
     Dosage: 50 MG, BID
     Route: 048
     Dates: start: 2010, end: 201211
  2. LANTUS [Concomitant]
  3. LISINOPRIL [Suspect]
     Indication: HYPERTENSION

REACTIONS (13)
  - Diabetes mellitus inadequate control [Unknown]
  - Pancreatitis [Recovered/Resolved]
  - Accelerated hypertension [Unknown]
  - Hypomagnesaemia [Unknown]
  - Anaemia of chronic disease [Unknown]
  - Hypercalcaemia [Recovered/Resolved]
  - Hysterectomy [Unknown]
  - Dyslipidaemia [Unknown]
  - Hyperlipidaemia [Unknown]
  - Hypertension [Unknown]
  - Drug hypersensitivity [Unknown]
  - Rotator cuff syndrome [Unknown]
  - Hyperparathyroidism primary [Unknown]
